FAERS Safety Report 11110880 (Version 1)
Quarter: 2015Q2

REPORT INFORMATION
  Report Type: Spontaneous
  Country: US (occurrence: US)
  Receive Date: 20150513
  Receipt Date: 20150513
  Transmission Date: 20150821
  Serious: No
  Sender: FDA-Public Use
  Company Number: US-PFIZER INC-2015158540

PATIENT
  Sex: Male

DRUGS (1)
  1. SONATA [Suspect]
     Active Substance: ZALEPLON
     Dosage: UNK

REACTIONS (2)
  - Restless legs syndrome [Unknown]
  - Fibromyalgia [Unknown]
